FAERS Safety Report 26184847 (Version 1)
Quarter: 2025Q4

REPORT INFORMATION
  Report Type: Spontaneous
  Country: CN (occurrence: CN)
  Receive Date: 20251222
  Receipt Date: 20251222
  Transmission Date: 20260118
  Serious: Yes (Hospitalization)
  Sender: DIZAL (JIANGSU) PHARMACEUTICAL CO., LTD.
  Company Number: CN-Dizal (Jiangsu) Pharmaceutical Co., Ltd.-2191073

PATIENT
  Age: 68 Year
  Sex: Male

DRUGS (1)
  1. SUNVOZERTINIB [Suspect]
     Active Substance: SUNVOZERTINIB
     Indication: Lung neoplasm malignant
     Route: 061
     Dates: start: 20251018, end: 20251031

REACTIONS (7)
  - Platelet count decreased [Recovering/Resolving]
  - Transaminases increased [Unknown]
  - Decreased appetite [Unknown]
  - Diarrhoea [Unknown]
  - Haemoptysis [Recovering/Resolving]
  - Gingival bleeding [Recovering/Resolving]
  - Epistaxis [Recovering/Resolving]

NARRATIVE: CASE EVENT DATE: 20251201
